FAERS Safety Report 10229765 (Version 3)
Quarter: 2014Q2

REPORT INFORMATION
  Report Type: Report from Study
  Country: BR (occurrence: BR)
  Receive Date: 20140611
  Receipt Date: 20140626
  Transmission Date: 20141212
  Serious: No
  Sender: FDA-Public Use
  Company Number: PHHY2014BR066995

PATIENT
  Sex: Female
  Weight: 65 kg

DRUGS (7)
  1. EXELON PATCH [Suspect]
     Indication: MEMORY IMPAIRMENT
     Dosage: 4.6 MG/24 H (PATCH 5 CM2)
     Route: 062
     Dates: start: 201401, end: 201403
  2. EXELON PATCH [Suspect]
     Indication: DEMENTIA ALZHEIMER^S TYPE
     Dosage: 9.5 MG/24 H (PATCH 10 CM2)
     Route: 062
     Dates: start: 201403, end: 20140606
  3. RITMONORM [Concomitant]
     Indication: ARRHYTHMIA
     Dosage: 2 DF, QD
  4. ESCITALOPRAM [Concomitant]
     Indication: DEPRESSION
     Dosage: 1 DF, QD
  5. CITALOPRAM [Concomitant]
     Indication: DEPRESSION
     Dosage: UNK UKN, UNK
  6. RUSOVAS [Concomitant]
     Indication: BLOOD CHOLESTEROL
     Dosage: UNK UKN, UNK
  7. DEPURA [Concomitant]
     Indication: VITAMIN D DEFICIENCY
     Dosage: UNK UKN, UNK
     Dates: start: 20140526

REACTIONS (9)
  - Skin wound [Not Recovered/Not Resolved]
  - Nervousness [Unknown]
  - Hypersensitivity [Recovering/Resolving]
  - Dermatitis bullous [Not Recovered/Not Resolved]
  - Pruritus [Not Recovered/Not Resolved]
  - Application site reaction [Recovered/Resolved]
  - Blister [Unknown]
  - Agitation [Unknown]
  - Depression [Not Recovered/Not Resolved]
